FAERS Safety Report 10160565 (Version 2)
Quarter: 2014Q2

REPORT INFORMATION
  Report Type: Report from Study
  Country: CA (occurrence: CA)
  Receive Date: 20140508
  Receipt Date: 20140508
  Transmission Date: 20141212
  Serious: Yes (Other)
  Sender: FDA-Public Use
  Company Number: CA-JNJFOC-20140304489

PATIENT
  Age: 29 Year
  Sex: Male
  Weight: 67.6 kg

DRUGS (2)
  1. REMICADE [Suspect]
     Indication: CROHN^S DISEASE
     Dosage: DOSE: 700 UNITS UNSPECIFIED.
     Route: 042
     Dates: start: 20140123
  2. REMICADE [Suspect]
     Indication: CROHN^S DISEASE
     Route: 042

REACTIONS (2)
  - Salmonellosis [Unknown]
  - Haemoglobin decreased [Unknown]
